FAERS Safety Report 9113089 (Version 2)
Quarter: 2013Q1

REPORT INFORMATION
  Report Type: Report from Study
  Country: CA (occurrence: CA)
  Receive Date: 20130211
  Receipt Date: 20130306
  Transmission Date: 20140127
  Serious: Yes (Other)
  Sender: FDA-Public Use
  Company Number: CA-ROCHE-1188053

PATIENT
  Sex: Male
  Weight: 68 kg

DRUGS (8)
  1. AVASTIN [Suspect]
     Indication: GLIOBLASTOMA
     Route: 042
     Dates: start: 20130123, end: 20130123
  2. TYLENOL [Concomitant]
     Indication: PREMEDICATION
     Route: 048
     Dates: start: 20130123, end: 20130123
  3. SOLU-MEDROL [Concomitant]
     Indication: PREMEDICATION
     Route: 042
     Dates: start: 20130123, end: 20130123
  4. BENADRYL [Concomitant]
     Indication: PREMEDICATION
     Route: 048
     Dates: start: 20130123, end: 20130123
  5. DECADRON [Concomitant]
  6. PROTRIN [Concomitant]
  7. LOVENOX [Concomitant]
  8. KEPPRA [Concomitant]

REACTIONS (4)
  - Asthenia [Not Recovered/Not Resolved]
  - General physical health deterioration [Unknown]
  - Respiratory disorder [Not Recovered/Not Resolved]
  - Disease progression [Unknown]
